FAERS Safety Report 24225970 (Version 2)
Quarter: 2024Q3

REPORT INFORMATION
  Report Type: Spontaneous
  Country: JP (occurrence: JP)
  Receive Date: 20240820
  Receipt Date: 20240909
  Transmission Date: 20241016
  Serious: Yes (Other)
  Sender: SANOFI AVENTIS
  Company Number: JP-SA-2024SA234859

PATIENT
  Age: 20 Year
  Sex: Female

DRUGS (1)
  1. FABRAZYME [Suspect]
     Active Substance: AGALSIDASE BETA
     Indication: Product used for unknown indication
     Dosage: 40 MG/DAY
     Route: 041
     Dates: start: 202108

REACTIONS (1)
  - Lacunar infarction [Recovering/Resolving]

NARRATIVE: CASE EVENT DATE: 20240801
